FAERS Safety Report 8149056-3 (Version None)
Quarter: 2012Q1

REPORT INFORMATION
  Report Type: 
  Country: None (occurrence: None)
  Receive Date: 20120218
  Receipt Date: 20110824
  Transmission Date: 20120608
  Serious: No
  Sender: FDA-Public Use
  Company Number: US-ALLERGAN-1111340US

PATIENT
  Age: 39 Year
  Sex: Female

DRUGS (7)
  1. IBUPROFEN [Concomitant]
     Dosage: UNK
  2. FIORICET [Concomitant]
     Dosage: UNK
  3. PROZAC [Concomitant]
     Dosage: UNK
  4. TOPAMAX [Concomitant]
     Dosage: UNK
  5. MAXALT [Concomitant]
     Dosage: UNK
  6. BOTULINUM TOXIN TYPE A [Suspect]
     Indication: MIGRAINE
     Dosage: UNK
     Route: 030
     Dates: start: 20110801, end: 20110801
  7. WELLBUTRIN [Concomitant]
     Dosage: UNK

REACTIONS (2)
  - INJECTION SITE PAIN [None]
  - HEADACHE [None]
